FAERS Safety Report 7326064-3 (Version None)
Quarter: 2011Q1

REPORT INFORMATION
  Report Type: 
  Country: None (occurrence: None)
  Receive Date: 20110302
  Receipt Date: 20110223
  Transmission Date: 20110831
  Serious: Yes (Other)
  Sender: FDA-Public Use
  Company Number: FR-JNJFOC-20110300033

PATIENT
  Age: 33 Year
  Sex: Male

DRUGS (3)
  1. SEROPLEX [Concomitant]
  2. ATARAX [Concomitant]
  3. RISPERDAL CONSTA [Suspect]
     Indication: SCHIZOPHRENIA
     Route: 030

REACTIONS (1)
  - GENERALISED OEDEMA [None]
